FAERS Safety Report 12060334 (Version 1)
Quarter: 2016Q1

REPORT INFORMATION
  Report Type: Spontaneous
  Country: US (occurrence: US)
  Receive Date: 20160210
  Receipt Date: 20160210
  Transmission Date: 20160526
  Serious: No
  Sender: FDA-Public Use
  Company Number: US-TEVA-608669USA

PATIENT
  Age: 63 Year
  Sex: Male
  Weight: 83.99 kg

DRUGS (3)
  1. OMEPRAZOLE. [Concomitant]
     Active Substance: OMEPRAZOLE
     Indication: FLATULENCE
  2. CELECOXIB. [Suspect]
     Active Substance: CELECOXIB
     Indication: OSTEOARTHRITIS
     Dosage: 200 MILLIGRAM DAILY;
     Route: 048
     Dates: start: 201509, end: 2015
  3. OMEPRAZOLE. [Concomitant]
     Active Substance: OMEPRAZOLE
     Indication: GASTRIC DISORDER
     Dosage: ONCE DAILY AS NEEDED FOR STOMACH ISSUES

REACTIONS (6)
  - Drug ineffective [Recovered/Resolved]
  - Urticaria [Recovered/Resolved with Sequelae]
  - Pruritus [Unknown]
  - Rash [Recovered/Resolved with Sequelae]
  - Nausea [Recovered/Resolved with Sequelae]
  - Skin irritation [Recovered/Resolved]

NARRATIVE: CASE EVENT DATE: 201508
